FAERS Safety Report 14397025 (Version 3)
Quarter: 2018Q4

REPORT INFORMATION
  Report Type: Spontaneous
  Country: US (occurrence: US)
  Receive Date: 20180116
  Receipt Date: 20181015
  Transmission Date: 20190204
  Serious: Yes (Other)
  Sender: FDA-Public Use
  Company Number: US-DEPOMED, INC.-US-2018DEP000032

PATIENT

DRUGS (6)
  1. NUCYNTA ER [Suspect]
     Active Substance: TAPENTADOL HYDROCHLORIDE
     Indication: NECK PAIN
     Dosage: 100 MG, BID
     Route: 048
     Dates: start: 2012, end: 20171223
  2. NUCYNTA ER [Suspect]
     Active Substance: TAPENTADOL HYDROCHLORIDE
     Indication: INTERVERTEBRAL DISC DEGENERATION
     Dosage: 100 MG, BID
     Route: 048
     Dates: start: 20180104
  3. NUCYNTA ER [Suspect]
     Active Substance: TAPENTADOL HYDROCHLORIDE
     Indication: FIBROMYALGIA
  4. LYRICA [Concomitant]
     Active Substance: PREGABALIN
     Indication: NECK PAIN
     Dosage: 75 MG, TID
     Route: 048
     Dates: start: 2012
  5. LYRICA [Concomitant]
     Active Substance: PREGABALIN
     Indication: FIBROMYALGIA
  6. LYRICA [Concomitant]
     Active Substance: PREGABALIN
     Indication: INTERVERTEBRAL DISC DEGENERATION

REACTIONS (4)
  - Drug ineffective [Not Recovered/Not Resolved]
  - Weight increased [Recovered/Resolved]
  - Spinal disorder [Recovered/Resolved]
  - Product distribution issue [Recovered/Resolved]

NARRATIVE: CASE EVENT DATE: 2012
